FAERS Safety Report 7150426-0 (Version None)
Quarter: 2010Q4

REPORT INFORMATION
  Report Type: 
  Country: None (occurrence: None)
  Receive Date: 20101210
  Receipt Date: 20101129
  Transmission Date: 20110411
  Serious: Yes (Other)
  Sender: FDA-Public Use
  Company Number: PHHY2010ES80890

PATIENT
  Age: 53 Year
  Sex: Male

DRUGS (1)
  1. ZOLEDRONATE [Suspect]
     Indication: LUNG ADENOCARCINOMA STAGE IV
     Dosage: UNK
     Route: 042
     Dates: start: 20070101

REACTIONS (4)
  - BONE DISORDER [None]
  - BONE FRAGMENTATION [None]
  - OSTEONECROSIS OF JAW [None]
  - PAIN IN JAW [None]
